FAERS Safety Report 4347079-3 (Version None)
Quarter: 2004Q2

REPORT INFORMATION
  Report Type: 
  Country: None (occurrence: None)
  Receive Date: 20040426
  Receipt Date: 20040415
  Transmission Date: 20050107
  Serious: Yes (Hospitalization)
  Sender: FDA-Public Use
  Company Number: FR-GLAXOSMITHKLINE-B0329966A

PATIENT
  Age: 20 Year
  Sex: Female

DRUGS (4)
  1. ZINNAT [Suspect]
     Indication: SALPINGITIS
     Route: 048
     Dates: start: 19990901, end: 19991101
  2. FLAGYL [Suspect]
     Indication: SALPINGITIS
     Dosage: 1500MG PER DAY
     Route: 048
     Dates: start: 19990901, end: 19991101
  3. IMOVANE [Suspect]
     Dosage: 15MG PER DAY
     Route: 048
  4. METHADONE [Suspect]
     Dosage: 34MG PER DAY
     Route: 048
     Dates: start: 19990101

REACTIONS (1)
  - POLYNEUROPATHY [None]
